FAERS Safety Report 4374568-8 (Version None)
Quarter: 2004Q2

REPORT INFORMATION
  Report Type: 
  Country: None (occurrence: None)
  Receive Date: 20040609
  Receipt Date: 20040604
  Transmission Date: 20050107
  Serious: Yes (Hospitalization)
  Sender: FDA-Public Use
  Company Number: FR-MERCK-0406FRA00025

PATIENT
  Age: 73 Year
  Sex: Female
  Weight: 60 kg

DRUGS (6)
  1. ACEPROMETAZINE MALEATE AND MEPROBAMATE [Suspect]
     Indication: INSOMNIA
     Route: 048
     Dates: end: 20040502
  2. FOSAMAX [Suspect]
     Indication: OSTEOPOROSIS
     Route: 048
     Dates: end: 20040502
  3. FLUTICASONE PROPIONATE AND SALMETEROL XINAFOATE [Suspect]
     Indication: ASTHMA
     Route: 055
     Dates: end: 20040502
  4. COZAAR [Suspect]
     Indication: HYPERTENSION
     Route: 048
     Dates: end: 20040502
  5. OMEPRAZOLE [Suspect]
     Route: 048
     Dates: end: 20040502
  6. ZOCOR [Suspect]
     Indication: HYPERCHOLESTEROLAEMIA
     Route: 048
     Dates: end: 20040502

REACTIONS (2)
  - COMA [None]
  - HYPONATRAEMIA [None]
